FAERS Safety Report 10095991 (Version 2)
Quarter: 2014Q2

REPORT INFORMATION
  Report Type: Spontaneous
  Country: US (occurrence: US)
  Receive Date: 20140422
  Receipt Date: 20140512
  Transmission Date: 20141212
  Serious: Yes (Hospitalization, Other)
  Sender: FDA-Public Use
  Company Number: US-BAYER-2014-056530

PATIENT
  Age: 44 Year
  Sex: Female

DRUGS (19)
  1. YAZ [Suspect]
  2. DIOVAN [Concomitant]
  3. TOPROL [Concomitant]
  4. HYDROCHLOROTHIAZIDE [Concomitant]
  5. VERAPAMIL [Concomitant]
  6. CLONIDINE [Concomitant]
  7. NEXIUM [Concomitant]
  8. CLONAZEPAM [Concomitant]
  9. COREG [Concomitant]
  10. COREG [Concomitant]
  11. PAXIL [Concomitant]
  12. PROCARDIA XL [Concomitant]
  13. FLOVENT [Concomitant]
  14. FERROUS SULFATE [Concomitant]
  15. LASIX [Concomitant]
  16. XOPENEX [Concomitant]
  17. THEO-DUR [Concomitant]
  18. SINGULAIR [Concomitant]
  19. VERAPAMIL [Concomitant]

REACTIONS (2)
  - Pulmonary embolism [None]
  - Transient ischaemic attack [None]
